FAERS Safety Report 20248074 (Version 1)
Quarter: 2021Q4

REPORT INFORMATION
  Report Type: Spontaneous
  Country: DE (occurrence: DE)
  Receive Date: 20211229
  Receipt Date: 20211229
  Transmission Date: 20220303
  Serious: Yes (Hospitalization)
  Sender: FDA-Public Use
  Company Number: DE-ADRED-07188-01

PATIENT
  Age: 55 Year
  Sex: Female

DRUGS (10)
  1. ETOPOSIDE [Suspect]
     Active Substance: ETOPOSIDE
     Dosage: 210 MG / WEEK, DAYS ONE TWO AND THREE
     Route: 042
  2. CARBOPLATIN [Suspect]
     Active Substance: CARBOPLATIN
     Dosage: 660 MG, ONCE IN THIS CYCLE
     Route: 042
  3. ARIORA [Concomitant]
     Dosage: 1 DOSAGE FORMS DAILY; 1-0-0-0, ARIORA 1 MG / 2 MG TABLETS
     Route: 048
  4. LEVOTHYROXINE SODIUM [Concomitant]
     Active Substance: LEVOTHYROXINE SODIUM
     Dosage: 1.5 DOSAGE FORMS DAILY; 100 MCG, 1.5-0-0-0, L-THYROXINE 100-1A PHARMA
     Route: 048
  5. GRANISETRON [Concomitant]
     Active Substance: GRANISETRON
     Dosage: 2 MG, ONE TABLET BEFORE AND AFTER CHEMO ON DAY ONE ON DAYS TWO TO FOUR JUST BEFORE,, GRANISETRON B.
     Route: 048
  6. DEXAMETHASONE [Concomitant]
     Active Substance: DEXAMETHASONE
     Dosage: 8 MG, ONE TABLET, DEXAMETHASON 8MG JENAPHARM
     Route: 048
  7. PANTOPRAZOLE SODIUM [Concomitant]
     Active Substance: PANTOPRAZOLE SODIUM
     Dosage: 40 MILLIGRAM DAILY; 1-0-0-0, PANTOPRAZOLE ARISTO 40MG
     Route: 048
  8. SERTRALINE HYDROCHLORIDE [Concomitant]
     Active Substance: SERTRALINE HYDROCHLORIDE
     Dosage: 100 MILLIGRAM DAILY; 50 MG, 2-0-0-0, SERTRALINE-1A PHARMA 50MG
     Route: 048
  9. FLUPENTIXOL [Concomitant]
     Active Substance: FLUPENTIXOL
     Dosage: 5 MILLIGRAM DAILY; 5 MG, 0-0-1-0, FLUANXOL 5MG
     Route: 048
  10. EMEND [Concomitant]
     Active Substance: APREPITANT
     Dosage: 150 MG, SOLUTION FOR INJECTION / INFUSION ONLY ON DAY ONE BEFORE CHEMOTHERAPY, EMEND 150MG
     Route: 042

REACTIONS (5)
  - Cough [Recovering/Resolving]
  - Dyspnoea [Recovering/Resolving]
  - Mucosal inflammation [Recovering/Resolving]
  - Productive cough [Recovering/Resolving]
  - Dysphagia [Recovering/Resolving]
